FAERS Safety Report 6556540-2 (Version None)
Quarter: 2010Q1

REPORT INFORMATION
  Report Type: 
  Country: None (occurrence: None)
  Receive Date: 20100128
  Receipt Date: 20100120
  Transmission Date: 20100710
  Serious: Yes (Hospitalization)
  Sender: FDA-Public Use
  Company Number: IT-PFIZER INC-2009302655

PATIENT
  Age: 62 Year
  Sex: Male

DRUGS (7)
  1. ESTRACYT [Suspect]
     Indication: PROSTATE CANCER
     Dosage: 6  UNIT DOSE X DAY
     Route: 048
     Dates: start: 20090904
  2. ENALAPRIL MALEATE [Interacting]
     Indication: HYPERTENSION
     Dosage: 20 MG X DAY
     Route: 048
     Dates: start: 20070909, end: 20090909
  3. NADROPARIN CALCIUM [Concomitant]
  4. MODURETIC ^MERCK^ [Concomitant]
  5. FUROSEMIDE [Concomitant]
  6. DICLOREUM [Concomitant]
  7. CO-EFFERALGAN [Concomitant]

REACTIONS (2)
  - ANGIOEDEMA [None]
  - DRUG INTERACTION [None]
